FAERS Safety Report 15206705 (Version 1)
Quarter: 2018Q3

REPORT INFORMATION
  Report Type: Spontaneous
  Country: IT (occurrence: IT)
  Receive Date: 20180727
  Receipt Date: 20180727
  Transmission Date: 20181010
  Serious: Yes (Hospitalization)
  Sender: FDA-Public Use
  Company Number: IT-TEVA-2018-IT-930011

PATIENT
  Age: 55 Year
  Sex: Female

DRUGS (6)
  1. NOZINAN [Suspect]
     Active Substance: LEVOMEPROMAZINE
     Dosage: 100 MILLIGRAM DAILY;
     Route: 048
     Dates: start: 20180513, end: 20180516
  2. LYRICA [Suspect]
     Active Substance: PREGABALIN
     Route: 048
     Dates: start: 20180513, end: 20180516
  3. TAVOR (LORAZEPAM) [Suspect]
     Active Substance: LORAZEPAM
     Dosage: 10 MILLIGRAM DAILY;
     Route: 048
     Dates: start: 20180513, end: 20180516
  4. SERTRALINE [Suspect]
     Active Substance: SERTRALINE HYDROCHLORIDE
     Dosage: 200 MILLIGRAM DAILY;
     Route: 048
     Dates: start: 20180513, end: 20180516
  5. OLANZAPINE. [Suspect]
     Active Substance: OLANZAPINE
     Route: 048
     Dates: start: 20180513, end: 20180516
  6. RIVOTRIL [Suspect]
     Active Substance: CLONAZEPAM
     Dosage: 60 GTT DAILY;
     Route: 048
     Dates: start: 20180513, end: 20180516

REACTIONS (3)
  - Intentional overdose [Recovered/Resolved]
  - Fall [Recovered/Resolved]
  - Intentional self-injury [Recovered/Resolved]

NARRATIVE: CASE EVENT DATE: 20180516
